FAERS Safety Report 7001685-6 (Version None)
Quarter: 2010Q3

REPORT INFORMATION
  Report Type: 
  Country: None (occurrence: None)
  Receive Date: 20100920
  Receipt Date: 20100910
  Transmission Date: 20110219
  Serious: Yes (Disabling, Other)
  Sender: FDA-Public Use
  Company Number: BR-PFIZER INC-2010111463

PATIENT
  Sex: Male

DRUGS (4)
  1. LIPITOR [Suspect]
     Indication: BLOOD CHOLESTEROL INCREASED
     Dosage: 10 MG, 1X/DAY, 1 TABLET
     Route: 048
     Dates: start: 20080101
  2. LIPITOR [Suspect]
     Dosage: 10 MG, ALTERNATE DAY
     Route: 048
     Dates: start: 20100101, end: 20100801
  3. LEXAPRO [Concomitant]
     Dosage: UNK
     Dates: start: 20100801
  4. NITROFURANTOIN [Concomitant]
     Dosage: UNK
     Dates: start: 20090101

REACTIONS (2)
  - BLOOD COPPER INCREASED [None]
  - HYPOAESTHESIA [None]
